FAERS Safety Report 6448543-3 (Version None)
Quarter: 2009Q4

REPORT INFORMATION
  Report Type: 
  Country: None (occurrence: None)
  Receive Date: 20091119
  Receipt Date: 20091119
  Transmission Date: 20100525
  Serious: Yes (Life-Threatening, Hospitalization, Other)
  Sender: FDA-Public Use
  Company Number: None

PATIENT
  Age: 74 Year
  Sex: Male
  Weight: 107 kg

DRUGS (2)
  1. PIPERACILLIN AND TAZOBACTAM [Suspect]
     Indication: UPPER RESPIRATORY TRACT INFECTION
     Dosage: 3.375 GM ONCE IV
     Route: 042
     Dates: start: 20091103, end: 20091103
  2. PIPERACILLIN AND TAZOBACTAM [Suspect]
     Indication: VASCULAR OPERATION
     Dosage: 3.375 GM ONCE IV
     Route: 042
     Dates: start: 20091103, end: 20091103

REACTIONS (9)
  - ANAPHYLACTIC REACTION [None]
  - ASTHENIA [None]
  - CHEST PAIN [None]
  - CHILLS [None]
  - CYANOSIS CENTRAL [None]
  - DYSPNOEA [None]
  - HYPERHIDROSIS [None]
  - PERIPHERAL ISCHAEMIA [None]
  - SPUTUM INCREASED [None]
